FAERS Safety Report 4395996-0 (Version None)
Quarter: 2004Q3

REPORT INFORMATION
  Report Type: 
  Country: None (occurrence: None)
  Receive Date: 20040707
  Receipt Date: 20040623
  Transmission Date: 20050211
  Serious: Yes (Hospitalization)
  Sender: FDA-Public Use
  Company Number: DE-2004-027560

PATIENT
  Age: 66 Year
  Sex: Male
  Weight: 66 kg

DRUGS (3)
  1. FLUDARA [Suspect]
     Dosage: SEE IMAGE
     Route: 042
     Dates: start: 20040329, end: 20040402
  2. FLUDARA [Suspect]
     Dosage: SEE IMAGE
     Route: 042
     Dates: start: 20040426, end: 20040430
  3. FLUDARA [Suspect]
     Dosage: SEE IMAGE
     Route: 042
     Dates: start: 20040524, end: 20040528

REACTIONS (3)
  - DIPLEGIA [None]
  - DYSAESTHESIA [None]
  - HYPERHIDROSIS [None]
